FAERS Safety Report 20431737 (Version 3)
Quarter: 2022Q3

REPORT INFORMATION
  Report Type: Spontaneous
  Country: US (occurrence: None)
  Receive Date: 20220204
  Receipt Date: 20220726
  Transmission Date: 20221027
  Serious: Yes (Other)
  Sender: FDA-Public Use
  Company Number: 2022A049647

PATIENT
  Age: 75 Year
  Sex: Male
  Weight: 90.7 kg

DRUGS (33)
  1. PRILOSEC OTC [Suspect]
     Active Substance: OMEPRAZOLE MAGNESIUM
     Indication: Gastrooesophageal reflux disease
     Dosage: DOSAGE AS RECOMMENDED.
     Route: 048
     Dates: start: 2010, end: 2018
  2. OMEPRAZOLE [Suspect]
     Active Substance: OMEPRAZOLE
     Indication: Gastrooesophageal reflux disease
     Dosage: GENERIC
     Route: 065
     Dates: end: 2018
  3. CYCLOSPORINE [Concomitant]
     Active Substance: CYCLOSPORINE
     Indication: Infection
     Dates: start: 201902
  4. CYCLOSPORINE [Concomitant]
     Active Substance: CYCLOSPORINE
     Indication: Immunology test
     Dates: start: 201902
  5. CYCLOSPORINE [Concomitant]
     Active Substance: CYCLOSPORINE
     Indication: Infection
     Dates: start: 202108
  6. CYCLOSPORINE [Concomitant]
     Active Substance: CYCLOSPORINE
     Indication: Immunology test
     Dates: start: 202108
  7. LISINOPRIL [Concomitant]
     Active Substance: LISINOPRIL
     Indication: Blood pressure measurement
     Dates: start: 201809
  8. LISINOPRIL [Concomitant]
     Active Substance: LISINOPRIL
     Indication: Blood pressure measurement
     Dates: start: 202108
  9. BUMEX [Concomitant]
     Active Substance: BUMETANIDE
     Indication: Blood pressure measurement
     Dates: start: 201812
  10. BUMEX [Concomitant]
     Active Substance: BUMETANIDE
     Indication: Blood pressure measurement
     Dates: start: 202109
  11. LASIX [Concomitant]
     Active Substance: FUROSEMIDE
     Indication: Renal disorder
     Dates: start: 201812
  12. LASIX [Concomitant]
     Active Substance: FUROSEMIDE
     Indication: Renal disorder
     Dates: start: 201901
  13. SPIRONOLACTONE [Concomitant]
     Active Substance: SPIRONOLACTONE
     Indication: Blood pressure measurement
     Dates: start: 201812
  14. SPIRONOLACTONE [Concomitant]
     Active Substance: SPIRONOLACTONE
     Indication: Blood pressure measurement
     Dates: start: 201903
  15. ROSUVASTATIN [Concomitant]
     Active Substance: ROSUVASTATIN
     Indication: Cardiac disorder
     Dates: start: 201902
  16. CRESTOR [Concomitant]
     Active Substance: ROSUVASTATIN CALCIUM
     Indication: Cardiac disorder
     Dates: start: 201812
  17. CRESTOR [Concomitant]
     Active Substance: ROSUVASTATIN CALCIUM
     Indication: Cardiac disorder
     Dates: start: 202109
  18. HYDROCHLOROTHIAZIDE [Concomitant]
     Active Substance: HYDROCHLOROTHIAZIDE
     Indication: Blood pressure measurement
     Dates: start: 2019
  19. IBUPROFEN [Concomitant]
     Active Substance: IBUPROFEN
     Indication: Pain
     Dosage: AS NEEDED
  20. ACETAMINOPHEN [Concomitant]
     Active Substance: ACETAMINOPHEN
     Indication: Pain
     Dosage: AS NEEDED
  21. ASPIRIN [Concomitant]
     Active Substance: ASPIRIN
     Indication: Heart alternation
     Dosage: AS NEEDED
  22. FAMOTIDINE (OTC) [Concomitant]
     Dates: start: 2017
  23. PEPCID AC [Concomitant]
     Active Substance: FAMOTIDINE
     Dates: start: 2018
  24. ZOFRAN [Concomitant]
     Active Substance: ONDANSETRON HYDROCHLORIDE
  25. COLACE [Concomitant]
     Active Substance: DOCUSATE SODIUM
  26. HEPARIN [Concomitant]
     Active Substance: HEPARIN SODIUM
  27. PREDNISONE [Concomitant]
     Active Substance: PREDNISONE
  28. VITAMINS [Concomitant]
     Active Substance: VITAMINS
  29. ERGOCALCIFEROL [Concomitant]
     Active Substance: ERGOCALCIFEROL
  30. POTASSIUM CHLORIDE [Concomitant]
     Active Substance: POTASSIUM CHLORIDE
  31. JARDIANCE [Concomitant]
     Active Substance: EMPAGLIFLOZIN
  32. PIOGLITAZONE [Concomitant]
     Active Substance: PIOGLITAZONE
  33. VITAMIN B COMPLEX [Concomitant]
     Active Substance: CYANOCOBALAMIN\DEXPANTHENOL\NIACINAMIDE\PYRIDOXINE HYDROCHLORIDE\RIBOFLAVIN 5^-PHOSPHATE SODIUM\THIA

REACTIONS (2)
  - Chronic kidney disease [Not Recovered/Not Resolved]
  - Acute kidney injury [Unknown]

NARRATIVE: CASE EVENT DATE: 20190101
